FAERS Safety Report 11169384 (Version 2)
Quarter: 2015Q3

REPORT INFORMATION
  Report Type: Spontaneous
  Country: US (occurrence: US)
  Receive Date: 20150605
  Receipt Date: 20150722
  Transmission Date: 20151125
  Serious: No
  Sender: FDA-Public Use
  Company Number: US-GLAXOSMITHKLINE-US2015075687

PATIENT
  Age: 54 Year
  Sex: Male
  Weight: 91.61 kg

DRUGS (2)
  1. PREZISTA [Suspect]
     Active Substance: DARUNAVIR ETHANOLATE
     Indication: PRODUCT USED FOR UNKNOWN INDICATION
     Dosage: UNK, U
  2. EPZICOM [Suspect]
     Active Substance: ABACAVIR SULFATE\LAMIVUDINE
     Indication: HIV INFECTION
     Dosage: UNK, 1D
     Route: 048
     Dates: start: 201306

REACTIONS (2)
  - Wrong technique in product usage process [Not Recovered/Not Resolved]
  - Medication residue present [Recovering/Resolving]

NARRATIVE: CASE EVENT DATE: 201505
